FAERS Safety Report 4976507-5 (Version None)
Quarter: 2006Q2

REPORT INFORMATION
  Report Type: 
  Country: None (occurrence: None)
  Receive Date: 20060419
  Receipt Date: 20060407
  Transmission Date: 20061013
  Serious: Yes (Hospitalization)
  Sender: FDA-Public Use
  Company Number: US-KINGPHARMUSA00001-K200600448

PATIENT
  Age: 86 Year
  Sex: Female

DRUGS (13)
  1. ALTACE [Suspect]
     Dosage: 2.5 MG, QD
     Route: 048
     Dates: start: 20051218, end: 20051229
  2. ALTACE [Suspect]
     Dosage: 1.25 MG, QD
     Route: 048
     Dates: start: 20051229
  3. NEXIUM [Suspect]
     Dosage: 20 MG, QD
     Route: 048
     Dates: start: 20051209
  4. EDRONAX [Suspect]
     Dosage: 4 MG, QD
     Route: 048
     Dates: start: 20051201, end: 20051203
  5. EDRONAX [Suspect]
     Dosage: 6 MG, QD
     Route: 048
     Dates: start: 20051204, end: 20051226
  6. EDRONAX [Suspect]
     Dosage: 2 MG, QD
     Route: 048
     Dates: start: 20051227
  7. TORSEMIDE [Suspect]
     Dosage: 10 MG, QD
     Route: 048
     Dates: start: 20051217, end: 20051222
  8. SEROQUEL [Concomitant]
     Dosage: 37.5 MG, UNK
     Route: 048
     Dates: start: 20051201, end: 20051208
  9. SEROQUEL [Concomitant]
     Dosage: 50 MG, UNK
     Route: 048
     Dates: start: 20051208, end: 20051220
  10. SEROQUEL [Concomitant]
     Dosage: 50 MG, UNK
     Route: 048
     Dates: start: 20051221
  11. GODAMED [Concomitant]
     Dosage: 100 MG, UNK
     Route: 048
     Dates: start: 20051217
  12. SIMVASTATIN [Concomitant]
     Dosage: 40 MG, UNK
     Route: 048
     Dates: start: 20051217
  13. TAVOR [Concomitant]

REACTIONS (9)
  - ANOREXIA [None]
  - ASTHENIA [None]
  - DEPRESSED MOOD [None]
  - DIZZINESS [None]
  - HYPONATRAEMIA [None]
  - MALAISE [None]
  - NAUSEA [None]
  - RESTLESSNESS [None]
  - VOMITING [None]
